FAERS Safety Report 7892763-8 (Version None)
Quarter: 2011Q4

REPORT INFORMATION
  Report Type: 
  Country: None (occurrence: None)
  Receive Date: 20111104
  Receipt Date: 20111027
  Transmission Date: 20120403
  Serious: Yes (Hospitalization)
  Sender: FDA-Public Use
  Company Number: FR-SANOFI-AVENTIS-2011SA070651

PATIENT
  Age: 71 Year
  Sex: Male

DRUGS (7)
  1. IKOREL [Concomitant]
     Route: 048
  2. CORDARONE [Concomitant]
     Route: 048
  3. FUCIDINE CAP [Concomitant]
     Indication: EYE INFECTION BACTERIAL
     Route: 048
  4. ASPIRIN [Concomitant]
     Route: 048
  5. PANTOPRAZOLE SODIUM [Concomitant]
     Route: 048
  6. LOVENOX [Suspect]
     Indication: THROMBOSIS PROPHYLAXIS
     Route: 058
     Dates: start: 20110901
  7. PREVISCAN [Concomitant]
     Route: 048
     Dates: start: 20110902

REACTIONS (5)
  - PURPURA [None]
  - NEUTROPENIA [None]
  - BLISTER [None]
  - LEUKOPENIA [None]
  - THROMBOCYTOPENIA [None]
